FAERS Safety Report 5012866-5 (Version None)
Quarter: 2006Q2

REPORT INFORMATION
  Report Type: 
  Country: None (occurrence: None)
  Receive Date: 20060530
  Receipt Date: 20060515
  Transmission Date: 20061013
  Serious: Yes (Other)
  Sender: FDA-Public Use
  Company Number: GBWYE624515MAY06

PATIENT
  Sex: Female

DRUGS (2)
  1. ENBREL [Suspect]
     Indication: DRUG USE FOR UNKNOWN INDICATION
     Dosage: UNKNOWN
     Route: 065
     Dates: start: 20050705, end: 20051001
  2. HUMIRA [Concomitant]
     Route: 065
     Dates: start: 20051019

REACTIONS (1)
  - ANTIPHOSPHOLIPID ANTIBODIES POSITIVE [None]
